FAERS Safety Report 7084090-6 (Version None)
Quarter: 2010Q4

REPORT INFORMATION
  Report Type: 
  Country: None (occurrence: None)
  Receive Date: 20101026
  Receipt Date: 20101015
  Transmission Date: 20110411
  Serious: Yes (Death, Hospitalization)
  Sender: FDA-Public Use
  Company Number: 2010AC000168

PATIENT
  Age: 70 Year
  Sex: Male

DRUGS (23)
  1. DIGOXIN [Suspect]
     Indication: PRODUCT USED FOR UNKNOWN INDICATION
     Dosage: 0.25 MG;QD;PO
     Route: 048
     Dates: start: 20080303
  2. SPIRONOLACTONE [Concomitant]
  3. PRAVASTATIN [Concomitant]
  4. GEMFIBROZIL [Concomitant]
  5. COREG [Concomitant]
  6. CORDARONE [Concomitant]
  7. GLIPIZIDE [Concomitant]
  8. LISINOPRIL [Concomitant]
  9. METFORMIN HCL [Concomitant]
  10. NITROGLYCERIN [Concomitant]
  11. LOPRESSOR [Concomitant]
  12. ACTOS [Concomitant]
  13. METOPROLOL [Concomitant]
  14. FUROSEMIDE [Concomitant]
  15. WARFARIN [Concomitant]
  16. VITAMINS [Concomitant]
  17. CHROMIUM CHLORIDE [Concomitant]
  18. EPINEPHRINE [Concomitant]
  19. DOBUTAMINE [Concomitant]
  20. LEVOPHED [Concomitant]
  21. LEVAQUIN [Concomitant]
  22. CIPRO [Concomitant]
  23. LOVAZA [Concomitant]

REACTIONS (25)
  - ASTHENIA [None]
  - ATRIAL FIBRILLATION [None]
  - BLOOD GLUCOSE INCREASED [None]
  - CARDIAC ARREST [None]
  - CARDIAC FAILURE ACUTE [None]
  - CARDIOGENIC SHOCK [None]
  - DECREASED APPETITE [None]
  - DIZZINESS [None]
  - DYSSTASIA [None]
  - EJECTION FRACTION DECREASED [None]
  - FAILURE TO THRIVE [None]
  - GASTROINTESTINAL DISORDER [None]
  - HYPERTENSION [None]
  - HYPOTENSION [None]
  - INJURY [None]
  - ISCHAEMIC CARDIOMYOPATHY [None]
  - MITRAL VALVE INCOMPETENCE [None]
  - PALPITATIONS [None]
  - PNEUMONIA [None]
  - PULMONARY HYPERTENSION [None]
  - PULSE ABSENT [None]
  - SEPSIS [None]
  - TACHYCARDIA [None]
  - TRICUSPID VALVE INCOMPETENCE [None]
  - VENTRICULAR HYPERTROPHY [None]
